FAERS Safety Report 25770653 (Version 1)
Quarter: 2025Q3

REPORT INFORMATION
  Report Type: Spontaneous
  Country: US (occurrence: US)
  Receive Date: 20250908
  Receipt Date: 20250908
  Transmission Date: 20251020
  Serious: Yes (Other)
  Sender: PRINSTON PHARMACEUTICAL
  Company Number: US-PRINSTON PHARMACEUTICAL INC.-2025PRN00103

PATIENT
  Age: 30 Year
  Sex: Female
  Weight: 67.585 kg

DRUGS (5)
  1. METHYLPHENIDATE HYDROCHLORIDE [Suspect]
     Active Substance: METHYLPHENIDATE HYDROCHLORIDE
     Indication: Attention deficit hyperactivity disorder
     Dates: start: 2024
  2. CAPLYTA [Suspect]
     Active Substance: LUMATEPERONE
  3. LAMOTRIGINE [Suspect]
     Active Substance: LAMOTRIGINE
  4. METHYLPHENIDATE [Concomitant]
     Active Substance: METHYLPHENIDATE
     Dosage: 20 MG, 3X/DAY
  5. UNSPECIFIED INGREDIENT [Concomitant]
     Active Substance: UNSPECIFIED INGREDIENT

REACTIONS (6)
  - Anaphylactic reaction [Recovered/Resolved]
  - Rash [Unknown]
  - Gluten sensitivity [Unknown]
  - Pruritus [Unknown]
  - Urticaria [Not Recovered/Not Resolved]
  - Product contamination [Unknown]

NARRATIVE: CASE EVENT DATE: 20250323
